FAERS Safety Report 8289564-8 (Version None)
Quarter: 2012Q2

REPORT INFORMATION
  Report Type: 
  Country: None (occurrence: None)
  Receive Date: 20120417
  Receipt Date: 20120405
  Transmission Date: 20120825
  Serious: Yes (Hospitalization, Other)
  Sender: FDA-Public Use
  Company Number: PHHO2010IT15757

PATIENT
  Sex: Female
  Weight: 48 kg

DRUGS (5)
  1. FTY [Suspect]
     Indication: MULTIPLE SCLEROSIS
     Dosage: DOUBLE BLIND
     Route: 048
     Dates: start: 20080730
  2. FTY [Suspect]
     Dosage: 0.5 MG, DAILY
     Route: 048
     Dates: end: 20100929
  3. FEDRA [Concomitant]
  4. OMEPRAZOLE [Concomitant]
  5. OXYBUTYNIN [Concomitant]

REACTIONS (9)
  - CYSTITIS [None]
  - PYREXIA [None]
  - ASTHENIA [None]
  - PARAESTHESIA [None]
  - DIARRHOEA [None]
  - ENCEPHALITIS [None]
  - CONDITION AGGRAVATED [None]
  - MULTIPLE SCLEROSIS RELAPSE [None]
  - ESCHERICHIA INFECTION [None]
